FAERS Safety Report 7988071-7 (Version None)
Quarter: 2011Q4

REPORT INFORMATION
  Report Type: 
  Country: None (occurrence: None)
  Receive Date: 20111216
  Receipt Date: 20110529
  Transmission Date: 20120403
  Serious: No
  Sender: FDA-Public Use
  Company Number: US-BRISTOL-MYERS SQUIBB COMPANY-15793821

PATIENT
  Age: 3 Decade
  Sex: Female

DRUGS (3)
  1. ABILIFY [Suspect]
  2. PRISTIQ [Suspect]
  3. LAMICTAL [Suspect]

REACTIONS (2)
  - OBSESSIVE THOUGHTS [None]
  - DYSPEPSIA [None]
